FAERS Safety Report 13132350 (Version 1)
Quarter: 2017Q1

REPORT INFORMATION
  Report Type: Spontaneous
  Country: FR (occurrence: FR)
  Receive Date: 20170120
  Receipt Date: 20170120
  Transmission Date: 20170428
  Serious: Yes (Other)
  Sender: FDA-Public Use
  Company Number: FR-ASTRAZENECA-2017SE04944

PATIENT
  Age: 61 Year
  Sex: Male

DRUGS (13)
  1. ADCIRCA [Suspect]
     Active Substance: TADALAFIL
     Route: 048
     Dates: start: 2011
  2. UROREC [Suspect]
     Active Substance: SILODOSIN
     Route: 048
  3. PROCORALAN [Suspect]
     Active Substance: IVABRADINE
     Route: 048
     Dates: start: 2010
  4. PREVISCAN [Suspect]
     Active Substance: FLUINDIONE
     Route: 048
     Dates: start: 2010
  5. AVODART [Suspect]
     Active Substance: DUTASTERIDE
     Dosage: 0.5MG UNKNOWN
     Route: 048
  6. TRACLEER [Suspect]
     Active Substance: BOSENTAN
     Route: 048
     Dates: start: 2011
  7. IMODIUM [Suspect]
     Active Substance: LOPERAMIDE HYDROCHLORIDE
     Route: 048
     Dates: start: 2009
  8. VELETRI [Suspect]
     Active Substance: EPOPROSTENOL
     Route: 065
     Dates: start: 201512
  9. INEXIUM [Suspect]
     Active Substance: ESOMEPRAZOLE
     Route: 048
     Dates: start: 2009
  10. METFORMINE [Suspect]
     Active Substance: METFORMIN HYDROCHLORIDE
     Dosage: 850MG, TWO TIMES A DAY (NON-AZ)
     Route: 048
     Dates: start: 2006
  11. TAHOR [Suspect]
     Active Substance: ATORVASTATIN CALCIUM
     Route: 048
     Dates: start: 2010
  12. LYRICA [Suspect]
     Active Substance: PREGABALIN
     Route: 048
  13. MONOTILDIEM [Suspect]
     Active Substance: DILTIAZEM
     Route: 048
     Dates: start: 2011

REACTIONS (1)
  - Toxic skin eruption [Not Recovered/Not Resolved]

NARRATIVE: CASE EVENT DATE: 2013
